FAERS Safety Report 6603742-2 (Version None)
Quarter: 2010Q1

REPORT INFORMATION
  Report Type: 
  Country: None (occurrence: None)
  Receive Date: 20100226
  Receipt Date: 20090113
  Transmission Date: 20100710
  Serious: No
  Sender: FDA-Public Use
  Company Number: A0763448A

PATIENT
  Age: 34 Year
  Sex: Male

DRUGS (3)
  1. LAMICTAL CD [Suspect]
     Indication: BIPOLAR DISORDER
     Dosage: 25MG PER DAY
     Route: 048
     Dates: start: 20090110, end: 20090111
  2. PROBIOTICS [Concomitant]
  3. VITAMIN D [Concomitant]

REACTIONS (5)
  - EYE PAIN [None]
  - EYE PRURITUS [None]
  - LYMPHADENOPATHY [None]
  - OROPHARYNGEAL PAIN [None]
  - PAIN [None]
